FAERS Safety Report 5848015-0 (Version None)
Quarter: 2008Q3

REPORT INFORMATION
  Report Type: 
  Country: None (occurrence: None)
  Receive Date: 20080818
  Receipt Date: 20080807
  Transmission Date: 20090109
  Serious: Yes (Hospitalization)
  Sender: FDA-Public Use
  Company Number: PL-AMGEN-UK286135

PATIENT
  Sex: Female

DRUGS (15)
  1. PANITUMUMAB [Suspect]
     Indication: COLORECTAL CANCER
     Route: 042
     Dates: start: 20080102, end: 20080602
  2. TRITACE [Concomitant]
     Route: 048
     Dates: start: 20061201
  3. BISOPROLOL FUMARATE [Concomitant]
     Route: 048
     Dates: start: 20061201
  4. INSULIN [Concomitant]
     Route: 058
  5. ASPIRIN [Concomitant]
     Route: 048
     Dates: start: 20060601
  6. NEOMYCIN SULFATE TAB [Concomitant]
     Route: 061
     Dates: start: 20080305
  7. CYCLO 3 [Concomitant]
     Route: 048
     Dates: start: 20080305
  8. GRANOCYTE [Concomitant]
     Route: 058
     Dates: start: 20080402
  9. ALLOPURINOL [Concomitant]
     Route: 048
     Dates: start: 20080527
  10. GENTAMYCIN SULFATE [Concomitant]
     Dates: start: 20080603
  11. INDAPAMIDE [Concomitant]
     Route: 048
     Dates: start: 20061201
  12. NIFEDIPINE [Concomitant]
     Route: 048
     Dates: start: 20080526
  13. FLUOROURACIL [Concomitant]
     Route: 042
  14. LEUCOVORIN CALCIUM [Concomitant]
     Route: 042
  15. OXALIPLATIN [Concomitant]
     Dates: end: 20080116

REACTIONS (1)
  - RENAL FAILURE [None]
